FAERS Safety Report 6598826-1 (Version None)
Quarter: 2010Q1

REPORT INFORMATION
  Report Type: 
  Country: None (occurrence: None)
  Receive Date: 20100217
  Receipt Date: 20100127
  Transmission Date: 20100710
  Serious: Yes (Death)
  Sender: FDA-Public Use
  Company Number: 2009AC000003

PATIENT
  Age: 68 Year
  Sex: Female

DRUGS (12)
  1. DIGOXIN [Suspect]
     Dosage: 0.125 MG; PO
     Route: 048
     Dates: start: 20060124, end: 20060915
  2. WARFARIN SODIUM [Concomitant]
  3. FUROSEMIDE [Concomitant]
  4. VERAPAMIL [Concomitant]
  5. OXYCO/APAP [Concomitant]
  6. CARDIZEM [Concomitant]
  7. LISINOPRIL [Concomitant]
  8. LORAZEPAM [Concomitant]
  9. TRIAZOLAM [Concomitant]
  10. PAROXETINE HCL [Concomitant]
  11. NITROGLYCERIN [Concomitant]
  12. PROMETHAZINE [Concomitant]

REACTIONS (4)
  - CARDIAC ANEURYSM [None]
  - ECONOMIC PROBLEM [None]
  - ILL-DEFINED DISORDER [None]
  - MULTIPLE INJURIES [None]
